FAERS Safety Report 4431897-7 (Version None)
Quarter: 2004Q3

REPORT INFORMATION
  Report Type: 
  Country: None (occurrence: None)
  Receive Date: 20040819
  Receipt Date: 20040806
  Transmission Date: 20050211
  Serious: Yes (Hospitalization)
  Sender: FDA-Public Use
  Company Number: 2004UW16877

PATIENT
  Age: 23 Year
  Sex: Male
  Weight: 77 kg

DRUGS (5)
  1. SEROQUEL [Suspect]
     Indication: SCHIZOPHRENIA, PARANOID TYPE
     Dosage: 300 MG BID; PO
     Route: 048
     Dates: start: 20040713, end: 20040806
  2. SEROQUEL [Suspect]
     Indication: SCHIZOPHRENIA, PARANOID TYPE
     Dosage: 400 MG BID; PO
     Route: 048
     Dates: start: 20040807
  3. DEPAKOTE [Concomitant]
  4. COGENTIN [Concomitant]
  5. CLONIDINE HCL [Concomitant]

REACTIONS (4)
  - CONDITION AGGRAVATED [None]
  - HYPOTENSION [None]
  - HYPOTHERMIA [None]
  - PSYCHOTIC DISORDER [None]
